FAERS Safety Report 6584309-1 (Version None)
Quarter: 2010Q1

REPORT INFORMATION
  Report Type: 
  Country: None (occurrence: None)
  Receive Date: 20100216
  Receipt Date: 20100205
  Transmission Date: 20100710
  Serious: No
  Sender: FDA-Public Use
  Company Number: US-ABBOTT-10P-163-0624936-00

PATIENT
  Sex: Male
  Weight: 108.96 kg

DRUGS (6)
  1. SIMCOR [Suspect]
     Indication: BLOOD CHOLESTEROL INCREASED
     Route: 048
     Dates: start: 20100101, end: 20100204
  2. SIMCOR [Suspect]
     Route: 048
     Dates: start: 20100101, end: 20100101
  3. EFFEXOR [Concomitant]
     Indication: DEPRESSION
     Route: 048
  4. VASOTEC [Concomitant]
     Indication: HYPERTENSION
     Route: 048
  5. TENORMIN [Concomitant]
     Indication: CARDIAC DISORDER
     Route: 048
  6. AMBIEN [Concomitant]
     Indication: INSOMNIA
     Dosage: AT BED TIME AS NEEDED
     Route: 048

REACTIONS (3)
  - GINGIVAL BLEEDING [None]
  - GINGIVAL PAIN [None]
  - INCORRECT DRUG ADMINISTRATION DURATION [None]
